FAERS Safety Report 5757019-8 (Version None)
Quarter: 2008Q2

REPORT INFORMATION
  Report Type: 
  Country: None (occurrence: None)
  Receive Date: 20080603
  Receipt Date: 20080526
  Transmission Date: 20081010
  Serious: Yes (Hospitalization)
  Sender: FDA-Public Use
  Company Number: NL-AMGEN-US264253

PATIENT
  Age: 58 Year
  Sex: Female
  Weight: 76 kg

DRUGS (4)
  1. ENBREL [Suspect]
     Indication: RHEUMATOID ARTHRITIS
     Route: 058
     Dates: end: 20071109
  2. NEXIUM [Concomitant]
     Indication: GASTRIC DISORDER
     Dosage: ONCE A DAY 1 TABLET
     Route: 065
     Dates: start: 20030117
  3. PREDNISOLONE [Concomitant]
     Indication: RHEUMATOID ARTHRITIS
     Route: 065
     Dates: start: 20070509
  4. CALCICHEW [Concomitant]
     Indication: OSTEOPOROSIS
     Dosage: ONCE A DAY 1 TABLET
     Route: 065
     Dates: start: 20050905

REACTIONS (1)
  - RESPIRATORY TRACT INFECTION [None]
